FAERS Safety Report 14535166 (Version 2)
Quarter: 2018Q2

REPORT INFORMATION
  Report Type: Spontaneous
  Country: FR (occurrence: FR)
  Receive Date: 20180215
  Receipt Date: 20180604
  Transmission Date: 20180711
  Serious: Yes (Hospitalization)
  Sender: FDA-Public Use
  Company Number: FR-TEVA-2018-FR-856126

PATIENT
  Age: 81 Year
  Sex: Female
  Weight: 94 kg

DRUGS (13)
  1. ZOPICLONE [Suspect]
     Active Substance: ZOPICLONE
     Indication: INSOMNIA
     Route: 048
     Dates: end: 20171016
  2. ECONAZOLE [Suspect]
     Active Substance: ECONAZOLE
     Indication: FUNGAL INFECTION
     Dosage: NON COMMUNIQU?E
     Route: 061
     Dates: start: 20170926, end: 20171018
  3. METOCLOPRAMIDE. [Suspect]
     Active Substance: METOCLOPRAMIDE
     Indication: PROPHYLAXIS OF NAUSEA AND VOMITING
     Dosage: NOT COMMUNICATED
     Dates: start: 20171002, end: 20171017
  4. PANTOPRAZOLE [Suspect]
     Active Substance: PANTOPRAZOLE
     Route: 048
     Dates: start: 20171002, end: 20171018
  5. TARGOCID [Suspect]
     Active Substance: TEICOPLANIN
     Dates: start: 20171009, end: 20171018
  6. COUMADINE 2 MG,TABLET [Suspect]
     Active Substance: WARFARIN SODIUM
     Indication: DEEP VEIN THROMBOSIS
     Dosage: NOT COMMUNICATED
     Route: 049
     Dates: start: 20171014, end: 20171016
  7. COLCHICINE. [Suspect]
     Active Substance: COLCHICINE
     Indication: CHONDROCALCINOSIS
     Dosage: NOT COMMUNICATED
     Route: 048
     Dates: start: 20171012, end: 20171016
  8. FLAMMAZINE, CREAM [Suspect]
     Active Substance: SILVER SULFADIAZINE
     Indication: WOUND INFECTION FUNGAL
     Dosage: NOT COMMUNICATED
     Route: 061
     Dates: start: 20171004, end: 20171016
  9. NEFOPAM (CHLORHYDRATE DE) [Suspect]
     Active Substance: NEFOPAM HYDROCHLORIDE
     Indication: PROCEDURAL PAIN
     Dosage: NOT COMMUNICATED
     Route: 065
     Dates: start: 20170923, end: 20171017
  10. TARGOCID [Suspect]
     Active Substance: TEICOPLANIN
     Indication: INFECTION
     Dosage: 800 MILLIGRAM DAILY;
     Route: 042
     Dates: start: 20171009, end: 20171018
  11. MEROPENEM ANHYDRE [Suspect]
     Active Substance: MEROPENEM
     Indication: BACTERIAL INFECTION
     Route: 042
     Dates: start: 20170925, end: 20171018
  12. MEROPENEM ANHYDRE [Suspect]
     Active Substance: MEROPENEM
     Route: 042
     Dates: start: 20170925, end: 20171018
  13. LASILIX SPECIAL 500 MG, TABLET [Suspect]
     Active Substance: FUROSEMIDE
     Indication: CARDIAC FAILURE
     Dosage: 1/2 CP PER DAY THEN 1 CP PER DAY THEN 1/2 CP PER DAY
     Route: 048
     Dates: start: 20170926, end: 20171020

REACTIONS (1)
  - Rash maculo-papular [Recovered/Resolved]

NARRATIVE: CASE EVENT DATE: 20171016
